FAERS Safety Report 15990638 (Version 4)
Quarter: 2020Q2

REPORT INFORMATION
  Report Type: Report from Study
  Country: AU (occurrence: AU)
  Receive Date: 20190221
  Receipt Date: 20200519
  Transmission Date: 20200713
  Serious: Yes (Other)
  Sender: FDA-Public Use
  Company Number: PHHY2015AU027814

PATIENT
  Age: 38 Year
  Sex: Female

DRUGS (1)
  1. GILENYA [Suspect]
     Active Substance: FINGOLIMOD HYDROCHLORIDE
     Indication: MULTIPLE SCLEROSIS
     Dosage: 0.5 MG, QD
     Route: 048
     Dates: start: 20140529

REACTIONS (25)
  - Haemoglobin increased [Unknown]
  - Neutrophilia [Unknown]
  - Lipase increased [Unknown]
  - Migraine [Unknown]
  - Macrocytosis [Recovered/Resolved]
  - C-reactive protein increased [Unknown]
  - Mean cell volume decreased [Unknown]
  - Aspartate aminotransferase increased [Not Recovered/Not Resolved]
  - Angiotensin converting enzyme increased [Unknown]
  - Vertigo [Unknown]
  - Alanine aminotransferase increased [Not Recovered/Not Resolved]
  - Blood bilirubin increased [Not Recovered/Not Resolved]
  - Blood albumin decreased [Recovered/Resolved]
  - Hypochromasia [Unknown]
  - Gamma-glutamyltransferase increased [Not Recovered/Not Resolved]
  - Haemoglobinaemia [Recovered/Resolved]
  - Blood chloride increased [Unknown]
  - Haematocrit increased [Unknown]
  - Red blood cell count increased [Unknown]
  - Monocytosis [Recovered/Resolved]
  - Blood bicarbonate decreased [Unknown]
  - Blood pressure increased [Unknown]
  - Lymphocyte count decreased [Not Recovered/Not Resolved]
  - Mean cell haemoglobin increased [Unknown]
  - Red cell distribution width increased [Unknown]

NARRATIVE: CASE EVENT DATE: 20140627
